FAERS Safety Report 12380380 (Version 1)
Quarter: 2016Q2

REPORT INFORMATION
  Report Type: Spontaneous
  Country: US (occurrence: None)
  Receive Date: 20160517
  Receipt Date: 20160517
  Transmission Date: 20160815
  Serious: Yes (Other)
  Sender: FDA-Public Use
  Company Number: None

PATIENT
  Age: 58 Year
  Sex: Male
  Weight: 77.11 kg

DRUGS (1)
  1. TAMSULOSIN 0.4MG ZYDUS [Suspect]
     Active Substance: TAMSULOSIN
     Indication: PHLEBOLITH
     Route: 048
     Dates: start: 20160425, end: 20160425

REACTIONS (4)
  - Dizziness [None]
  - Muscular weakness [None]
  - Syncope [None]
  - Fall [None]

NARRATIVE: CASE EVENT DATE: 20160425
